FAERS Safety Report 6085449-6 (Version None)
Quarter: 2009Q1

REPORT INFORMATION
  Report Type: 
  Country: None (occurrence: None)
  Receive Date: 20090220
  Receipt Date: 20090115
  Transmission Date: 20090719
  Serious: Yes (Hospitalization)
  Sender: FDA-Public Use
  Company Number: FR-AVENTIS-200910546FR

PATIENT
  Age: 92 Year
  Sex: Female

DRUGS (8)
  1. LASIX [Suspect]
     Indication: DRUG USE FOR UNKNOWN INDICATION
     Route: 048
     Dates: end: 20080123
  2. EBIXA [Suspect]
     Route: 048
     Dates: start: 20071229, end: 20080104
  3. EBIXA [Suspect]
     Route: 048
     Dates: start: 20080105, end: 20080111
  4. EBIXA [Suspect]
     Route: 048
     Dates: start: 20080112, end: 20080101
  5. EBIXA [Suspect]
     Route: 048
     Dates: start: 20080101, end: 20080123
  6. PROZAC [Suspect]
     Indication: DRUG USE FOR UNKNOWN INDICATION
     Route: 048
     Dates: end: 20080123
  7. TEMESTA                            /00273201/ [Suspect]
     Indication: DRUG USE FOR UNKNOWN INDICATION
     Route: 048
     Dates: end: 20090123
  8. SOTALEX [Concomitant]
     Indication: DRUG USE FOR UNKNOWN INDICATION
     Route: 048

REACTIONS (2)
  - CONFUSIONAL STATE [None]
  - SOMNOLENCE [None]
